FAERS Safety Report 5004944-1 (Version None)
Quarter: 2006Q1

REPORT INFORMATION
  Report Type: 
  Country: None (occurrence: None)
  Receive Date: 20060321
  Receipt Date: 20051213
  Transmission Date: 20060701
  Serious: No
  Sender: FDA-Public Use
  Company Number: YPA20060005

PATIENT
  Age: 82 Year
  Sex: Female
  Weight: 81.8 kg

DRUGS (2)
  1. VESICARE [Suspect]
     Indication: POLLAKIURIA
     Dosage: 5 MG, UID/QD, ORAL
     Route: 048
     Dates: start: 20051206
  2. UNSPECIFIED MEDICATION [Concomitant]

REACTIONS (1)
  - DRUG INEFFECTIVE [None]
